FAERS Safety Report 23118124 (Version 2)
Quarter: 2023Q4

REPORT INFORMATION
  Report Type: Report from Study
  Country: NL (occurrence: NL)
  Receive Date: 20231027
  Receipt Date: 20231123
  Transmission Date: 20240110
  Serious: Yes (Death)
  Sender: FDA-Public Use
  Company Number: NL-DSJP-DSU-2022-143825

PATIENT
  Age: 75 Year
  Sex: Female
  Weight: 60 kg

DRUGS (5)
  1. ENHERTU [Suspect]
     Active Substance: FAM-TRASTUZUMAB DERUXTECAN-NXKI
     Indication: HER2 positive breast cancer
     Dosage: 324 MG
     Route: 042
     Dates: start: 20220816, end: 20220907
  2. ENHERTU [Suspect]
     Active Substance: FAM-TRASTUZUMAB DERUXTECAN-NXKI
     Dosage: 259 MG
     Route: 042
     Dates: start: 20221005, end: 20221103
  3. FENTANYL [Concomitant]
     Active Substance: FENTANYL\FENTANYL CITRATE
     Indication: Pain
     Dosage: 25 1/3 DAY, EXT
     Route: 065
     Dates: start: 20220110
  4. RIVAROXABAN [Concomitant]
     Active Substance: RIVAROXABAN
     Indication: Deep vein thrombosis
     Dosage: 10 UNK, 1D1
     Route: 048
     Dates: start: 2019
  5. PANTOPRAZOLE [Concomitant]
     Active Substance: PANTOPRAZOLE
     Indication: Gastric pH decreased
     Dosage: 40 UNK, 1D1
     Route: 048
     Dates: start: 2017

REACTIONS (5)
  - Disease progression [Fatal]
  - Diarrhoea [Unknown]
  - Fatigue [Unknown]
  - Wound [Unknown]
  - Metastasis [Recovered/Resolved]

NARRATIVE: CASE EVENT DATE: 20220101
